FAERS Safety Report 5883502-0 (Version None)
Quarter: 2008Q3

REPORT INFORMATION
  Report Type: 
  Country: None (occurrence: None)
  Receive Date: 20080915
  Receipt Date: 20080911
  Transmission Date: 20090109
  Serious: Yes (Death, Other)
  Sender: FDA-Public Use
  Company Number: PHHY2008BR20931

PATIENT
  Age: 78 Year
  Sex: Male
  Weight: 42 kg

DRUGS (4)
  1. EXELON [Suspect]
     Indication: SENILE DEMENTIA
     Dosage: 1.5 MG, QD
     Route: 048
  2. EXELON [Suspect]
     Dosage: 1.5 MG, TWO CAPSULES DAILY
  3. TIADEN [Concomitant]
     Indication: PARKINSON'S DISEASE
     Dosage: 200 MG, 2 TABLET DAILY
     Route: 048
  4. PROLOPA [Concomitant]
     Indication: MUSCLE RIGIDITY
     Dosage: 200/50 MG HALF TABLET IN MORNING AND HALF TABLET IN AFTERNOON
     Route: 048

REACTIONS (5)
  - CARDIO-RESPIRATORY ARREST [None]
  - DEHYDRATION [None]
  - DEMENTIA [None]
  - HYPOPHAGIA [None]
  - MALNUTRITION [None]
